FAERS Safety Report 5809729-1 (Version None)
Quarter: 2008Q3

REPORT INFORMATION
  Report Type: 
  Country: None (occurrence: None)
  Receive Date: 20080714
  Receipt Date: 20080714
  Transmission Date: 20090109
  Serious: No
  Sender: FDA-Public Use
  Company Number: None

PATIENT
  Age: 65 Year
  Sex: Female
  Weight: 83.9154 kg

DRUGS (1)
  1. ACEON [Suspect]
     Indication: BLOOD PRESSURE INCREASED
     Dosage: 2MG 1 DAILY
     Dates: start: 20071220, end: 20080220

REACTIONS (10)
  - COUGH [None]
  - DYSPNOEA [None]
  - FEELING ABNORMAL [None]
  - HEADACHE [None]
  - HERPES ZOSTER [None]
  - INSOMNIA [None]
  - JOINT SWELLING [None]
  - ORAL HERPES [None]
  - PALPITATIONS [None]
  - ROSACEA [None]
